FAERS Safety Report 17410167 (Version 3)
Quarter: 2020Q2

REPORT INFORMATION
  Report Type: Report from Study
  Country: US (occurrence: US)
  Receive Date: 20200212
  Receipt Date: 20200420
  Transmission Date: 20200713
  Serious: Yes (Death, Other)
  Sender: FDA-Public Use
  Company Number: US-B.I. PHARMACEUTICALS,INC./RIDGEFIELD-2020-BI-004199

PATIENT
  Sex: Male

DRUGS (2)
  1. OFEV [Suspect]
     Active Substance: NINTEDANIB
     Indication: IDIOPATHIC PULMONARY FIBROSIS
     Route: 065
     Dates: start: 201906
  2. OFEV [Suspect]
     Active Substance: NINTEDANIB
     Route: 048
     Dates: start: 20190924

REACTIONS (9)
  - Chronic obstructive pulmonary disease [Unknown]
  - Gastrointestinal haemorrhage [Fatal]
  - Bronchiectasis [Unknown]
  - Septic shock [Unknown]
  - Asthma [Unknown]
  - Pneumonia [Unknown]
  - Idiopathic pulmonary fibrosis [Unknown]
  - Atrial fibrillation [Unknown]
  - Respiratory failure [Unknown]
